FAERS Safety Report 8562406-9 (Version None)
Quarter: 2012Q3

REPORT INFORMATION
  Report Type: 
  Country: None (occurrence: None)
  Receive Date: 20120802
  Receipt Date: 20120703
  Transmission Date: 20120928
  Serious: No
  Sender: FDA-Public Use
  Company Number: US-AMGEN-USASP2012033466

PATIENT
  Age: 70 Year
  Sex: Female

DRUGS (2)
  1. ENBREL [Suspect]
     Indication: RHEUMATOID ARTHRITIS
     Dosage: 50 MG, QWK
     Dates: start: 20120507
  2. METHOTREXATE [Concomitant]
     Dosage: 1 MG, UNK

REACTIONS (7)
  - FEELING ABNORMAL [None]
  - WALKING AID USER [None]
  - INFLAMMATION [None]
  - MOBILITY DECREASED [None]
  - GROIN PAIN [None]
  - PRODUCTIVE COUGH [None]
  - RHEUMATOID ARTHRITIS [None]
